FAERS Safety Report 5299215-2 (Version None)
Quarter: 2007Q2

REPORT INFORMATION
  Report Type: 
  Country: None (occurrence: None)
  Receive Date: 20070417
  Receipt Date: 20070410
  Transmission Date: 20071010
  Serious: Yes (Hospitalization, Other)
  Sender: FDA-Public Use
  Company Number: DE-JNJFOC-20070401891

PATIENT
  Age: 79 Year
  Sex: Female

DRUGS (1)
  1. HALDOL DECANOAT [Suspect]
     Indication: SCHIZOPHRENIA
     Route: 065

REACTIONS (1)
  - HEPATIC CIRRHOSIS [None]
